FAERS Safety Report 8313870-1 (Version None)
Quarter: 2012Q2

REPORT INFORMATION
  Report Type: 
  Country: None (occurrence: None)
  Receive Date: 20120426
  Receipt Date: 20120417
  Transmission Date: 20120825
  Serious: Yes (Other)
  Sender: FDA-Public Use
  Company Number: US-ASTRAZENECA-2011SE64420

PATIENT
  Age: 50 Year
  Sex: Female

DRUGS (2)
  1. SEROQUEL [Suspect]
     Indication: DEPRESSION
     Route: 048
  2. SEROQUEL [Suspect]
     Indication: INSOMNIA
     Route: 048

REACTIONS (3)
  - INTENTIONAL DRUG MISUSE [None]
  - JOINT DISLOCATION [None]
  - INSOMNIA [None]
